FAERS Safety Report 23999002 (Version 1)
Quarter: 2024Q2

REPORT INFORMATION
  Report Type: Spontaneous
  Country: US (occurrence: None)
  Receive Date: 20240620
  Receipt Date: 20240620
  Transmission Date: 20240716
  Serious: Yes (Other)
  Sender: FDA-Public Use
  Company Number: None

PATIENT
  Age: 44 Year
  Sex: Male
  Weight: 91.5 kg

DRUGS (1)
  1. DALBAVANCIN [Suspect]
     Active Substance: DALBAVANCIN
     Dates: start: 20240619, end: 20240619

REACTIONS (8)
  - Ear pruritus [None]
  - Pruritus [None]
  - Rash [None]
  - Rash [None]
  - Lip swelling [None]
  - Swollen tongue [None]
  - Hypersensitivity [None]
  - Infusion related reaction [None]

NARRATIVE: CASE EVENT DATE: 20240619
